FAERS Safety Report 7400134-3 (Version None)
Quarter: 2011Q2

REPORT INFORMATION
  Report Type: 
  Country: None (occurrence: None)
  Receive Date: 20110407
  Receipt Date: 20110330
  Transmission Date: 20111010
  Serious: Yes (Hospitalization)
  Sender: FDA-Public Use
  Company Number: CA-BAXTER-2011BH008775

PATIENT
  Age: 46 Year
  Sex: Female

DRUGS (4)
  1. CYCLOPHOSPHAMIDE [Suspect]
     Indication: CHEMOTHERAPY
     Route: 065
     Dates: start: 20110218
  2. TRIPTORELIN [Suspect]
     Indication: OVARIAN FAILURE
     Route: 030
     Dates: start: 20110218, end: 20110218
  3. TRIPTORELIN [Suspect]
     Indication: HORMONE REPLACEMENT THERAPY
     Route: 030
     Dates: start: 20110218, end: 20110218
  4. DOCETAXEL [Suspect]
     Indication: CHEMOTHERAPY
     Route: 065
     Dates: start: 20110218

REACTIONS (5)
  - OROPHARYNGEAL PAIN [None]
  - ORAL PAIN [None]
  - RASH PRURITIC [None]
  - LIP SWELLING [None]
  - NEUTROPENIA [None]
